FAERS Safety Report 4370876-5 (Version None)
Quarter: 2004Q2

REPORT INFORMATION
  Report Type: 
  Country: None (occurrence: None)
  Receive Date: 20040601
  Receipt Date: 20040520
  Transmission Date: 20050107
  Serious: Yes (Death, Hospitalization)
  Sender: FDA-Public Use
  Company Number: STA-AE-04-MTX-205

PATIENT
  Age: 77 Year
  Sex: Female

DRUGS (10)
  1. RHEUMATREX [Suspect]
     Indication: RHEUMATOID ARTHRITIS
     Dosage: 6 MG 1X PER 1 WK, ORAL
     Route: 048
     Dates: start: 20040310, end: 20040406
  2. RHEUMATREX [Suspect]
     Indication: RHEUMATOID ARTHRITIS
     Dosage: ORAL
     Route: 048
     Dates: start: 20040407, end: 20040420
  3. MOBIC [Suspect]
     Indication: RHEUMATOID ARTHRITIS
     Dosage: ORAL
     Route: 048
     Dates: start: 20040407, end: 20040420
  4. ONE-ALPHA (ALFACALCIDOL) [Concomitant]
  5. BREDININ (MIZORIBINE) [Concomitant]
  6. ADALAT [Concomitant]
  7. ALDOMET [Concomitant]
  8. ISOSORBIDE MONONITRATE [Concomitant]
  9. LENDORM [Concomitant]
  10. ZOLPIDEM (ZOLPIDEM) [Concomitant]

REACTIONS (5)
  - DIARRHOEA [None]
  - GINGIVAL BLEEDING [None]
  - HAEMORRHAGE SUBCUTANEOUS [None]
  - PANCYTOPENIA [None]
  - REFUSAL OF TREATMENT BY PATIENT [None]
